FAERS Safety Report 6865962-1 (Version None)
Quarter: 2010Q3

REPORT INFORMATION
  Report Type: 
  Country: None (occurrence: None)
  Receive Date: 20100722
  Receipt Date: 20100707
  Transmission Date: 20110219
  Serious: Yes (Disabling, Other)
  Sender: FDA-Public Use
  Company Number: PHEH2007US03407

PATIENT
  Sex: Female

DRUGS (16)
  1. AREDIA [Suspect]
  2. ZOMETA [Suspect]
  3. RENAGEL [Concomitant]
     Dosage: 800 MG, UNK
  4. KAYEXALATE [Concomitant]
     Dosage: UNK
  5. THALIDOMIDE [Concomitant]
     Dosage: 50 MG, QID
  6. BACTRIM [Concomitant]
     Dosage: 80 MG, BIW
  7. OXYCONTIN [Concomitant]
     Dosage: 10 MG, UNK
  8. NORVASC [Concomitant]
     Dosage: 10 MG, BID
  9. DIOVAN [Concomitant]
     Dosage: 160 MG, BID
  10. TOPRAL XL [Concomitant]
     Dosage: 50 MG, UNK
  11. CALCIUM CARBONATE [Concomitant]
     Dosage: 400 MG, QID
  12. OMEPRAZOLE [Concomitant]
     Dosage: 20 MG, QD
  13. LORTAB [Concomitant]
     Dosage: 7.5 MG, PRN
  14. STEROIDS NOS [Concomitant]
     Dosage: PULSE THERAPY
  15. NEPHRO-VITE [Concomitant]
  16. CHEMOTHERAPEUTICS NOS [Concomitant]

REACTIONS (34)
  - ABDOMINAL PAIN UPPER [None]
  - ANAEMIA [None]
  - ANGIOPLASTY [None]
  - ANXIETY [None]
  - ARTERIOVENOUS FISTULA SITE COMPLICATION [None]
  - ARTERIOVENOUS FISTULA THROMBOSIS [None]
  - ARTERIOVENOUS GRAFT ANEURYSM [None]
  - AZOTAEMIA [None]
  - BACK PAIN [None]
  - BARRETT'S OESOPHAGUS [None]
  - BLOOD CALCIUM DECREASED [None]
  - CHOLECYSTECTOMY [None]
  - CHOLECYSTITIS [None]
  - COLON POLYPECTOMY [None]
  - COLONIC POLYP [None]
  - COUGH [None]
  - DECREASED INTEREST [None]
  - DIVERTICULUM [None]
  - EROSIVE OESOPHAGITIS [None]
  - GALLBLADDER CHOLESTEROLOSIS [None]
  - GASTRITIS [None]
  - GENERAL PHYSICAL HEALTH DETERIORATION [None]
  - HAEMATEMESIS [None]
  - HAEMORRHOIDS [None]
  - HEADACHE [None]
  - HIATUS HERNIA [None]
  - OSTEITIS [None]
  - OSTEONECROSIS OF JAW [None]
  - PAIN [None]
  - RENAL FAILURE ACUTE [None]
  - THROMBECTOMY [None]
  - THROMBOLYSIS [None]
  - TOOTH ABSCESS [None]
  - TRANSFUSION [None]
